FAERS Safety Report 5320921-5 (Version None)
Quarter: 2007Q2

REPORT INFORMATION
  Report Type: 
  Country: None (occurrence: None)
  Receive Date: 20070504
  Receipt Date: 20070416
  Transmission Date: 20071010
  Serious: Yes (Other)
  Sender: FDA-Public Use
  Company Number: 6032421

PATIENT
  Age: 34 Year
  Sex: Female

DRUGS (2)
  1. ZOLPIDEM TARTRATE [Suspect]
     Indication: INSOMNIA
     Dosage: 10 MG
  2. TRAZODONE HCL [Concomitant]

REACTIONS (4)
  - ANTEROGRADE AMNESIA [None]
  - INSOMNIA [None]
  - NO THERAPEUTIC RESPONSE [None]
  - OBSESSIVE-COMPULSIVE DISORDER [None]
